FAERS Safety Report 8418188-4 (Version None)
Quarter: 2012Q2

REPORT INFORMATION
  Report Type: 
  Country: None (occurrence: None)
  Receive Date: 20120607
  Receipt Date: 20120601
  Transmission Date: 20120825
  Serious: Yes (Other)
  Sender: FDA-Public Use
  Company Number: US-BAYER-2012-055369

PATIENT
  Age: 31 Year
  Sex: Female

DRUGS (13)
  1. YAZ [Suspect]
  2. TAMSULOSIN HYDROCHLORIDE [Concomitant]
     Dosage: 0.4 MG, UNK
     Dates: start: 20110916
  3. FLUOXETINE HYDROCHLORIDE [Concomitant]
     Dosage: 20 MG, UNK
  4. DROSPIRENONE AND ETHINYL ESTRADIOL [Suspect]
  5. CIPROFLOXACIN HCL [Concomitant]
     Dosage: 500 MG, UNK
     Dates: start: 20110916
  6. TRIAMCINOLONE ACETATE [Concomitant]
     Dosage: 0.1% BID (INTERPRETED AS TWICE PER DAY) AS NEEDED
  7. PROZAC [Concomitant]
     Dosage: 20MG 1 CAPSULE DAILY
     Route: 048
  8. FLUTICASONE FUROATE [Concomitant]
     Dosage: 50MCG SPRAY
     Dates: start: 20111117
  9. PROMETHAZINE [Concomitant]
     Dosage: 25 MG, UNK
     Dates: start: 20110916, end: 20110921
  10. NITROFURANTOIN MONO-MCR [Concomitant]
     Dosage: 100 MG, UNK
     Dates: start: 20110921
  11. ERGOCALCIFEROL [Concomitant]
     Dosage: 50,000 UNITS 1 CAP WEEKLY
     Route: 048
  12. OXYCODONE HCL AND ACETAMINOPHEN [Concomitant]
     Dosage: 5-500
     Dates: start: 20110916, end: 20111020
  13. CETIRIZINE HYDROCHLORIDE [Concomitant]
     Dosage: 100 MG, UNK
     Dates: start: 20111118

REACTIONS (2)
  - CHOLECYSTITIS CHRONIC [None]
  - BILE DUCT STONE [None]
